FAERS Safety Report 13966158 (Version 9)
Quarter: 2018Q2

REPORT INFORMATION
  Report Type: Report from Study
  Country: US (occurrence: US)
  Receive Date: 20170913
  Receipt Date: 20180607
  Transmission Date: 20180711
  Serious: No
  Sender: FDA-Public Use
  Company Number: US-ALEXION PHARMACEUTICALS INC.-A201710126

PATIENT
  Sex: Male

DRUGS (2)
  1. STRENSIQ [Suspect]
     Active Substance: ASFOTASE ALFA
     Indication: HYPOPHOSPHATASIA
     Dosage: UNK
     Route: 058
  2. STRENSIQ [Suspect]
     Active Substance: ASFOTASE ALFA
     Dosage: UNK
     Route: 058

REACTIONS (25)
  - Anxiety [Unknown]
  - Tinnitus [Unknown]
  - Gastrointestinal pain [Unknown]
  - Headache [Unknown]
  - Tremor [Unknown]
  - Blood alkaline phosphatase increased [Unknown]
  - Pain [Recovering/Resolving]
  - Insomnia [Unknown]
  - Dizziness [Unknown]
  - Arthralgia [Not Recovered/Not Resolved]
  - Vitamin B6 deficiency [Unknown]
  - Injection site pain [Unknown]
  - Paraesthesia [Unknown]
  - Neuralgia [Unknown]
  - Nausea [Unknown]
  - Erythema [Unknown]
  - Iliotibial band syndrome [Not Recovered/Not Resolved]
  - Diarrhoea [Unknown]
  - Pain in extremity [Unknown]
  - Pruritus [Unknown]
  - Myalgia [Unknown]
  - Muscle spasms [Unknown]
  - Bone pain [Not Recovered/Not Resolved]
  - Musculoskeletal pain [Not Recovered/Not Resolved]
  - Vertigo [Unknown]

NARRATIVE: CASE EVENT DATE: 20170825
